FAERS Safety Report 19453587 (Version 1)
Quarter: 2021Q2

REPORT INFORMATION
  Report Type: Spontaneous
  Country: AU (occurrence: AU)
  Receive Date: 20210623
  Receipt Date: 20210623
  Transmission Date: 20210717
  Serious: Yes (Other)
  Sender: FDA-Public Use
  Company Number: AU-ROCHE-2854060

PATIENT
  Sex: Female

DRUGS (4)
  1. LUCENTIS [Suspect]
     Active Substance: RANIBIZUMAB
     Indication: RETINAL VEIN OCCLUSION
     Dosage: UNK
     Route: 031
     Dates: start: 201806
  2. CEFTAZIDIME. [Concomitant]
     Active Substance: CEFTAZIDIME
     Indication: PRODUCT USED FOR UNKNOWN INDICATION
     Dosage: 0.6 ML
     Route: 031
  3. LUCENTIS [Suspect]
     Active Substance: RANIBIZUMAB
     Dosage: UNK
     Route: 031
     Dates: start: 20210601
  4. VANCOMYCIN [Concomitant]
     Active Substance: VANCOMYCIN
     Indication: PRODUCT USED FOR UNKNOWN INDICATION
     Route: 031

REACTIONS (1)
  - Bacterial endophthalmitis [Unknown]

NARRATIVE: CASE EVENT DATE: 202106
